FAERS Safety Report 9238088 (Version 1)
Quarter: 2013Q2

REPORT INFORMATION
  Report Type: Spontaneous
  Country: US (occurrence: None)
  Receive Date: 20130415
  Receipt Date: 20130415
  Transmission Date: 20140414
  Serious: Yes (Hospitalization, Other)
  Sender: FDA-Public Use
  Company Number: ALK-2013-001465

PATIENT
  Age: 47 Year
  Sex: Female
  Weight: 81.6 kg

DRUGS (9)
  1. VIVITROL (VIVITROL_NDA) INJECTION, 380MG [Suspect]
     Indication: ALCOHOLISM
     Route: 030
     Dates: start: 20120529
  2. NEXIUM (ESOMEPRAZOLE MAGNESIUM) [Concomitant]
  3. ALBUTEROL (SALBUTAMOL) [Concomitant]
  4. RISPERIDONE (RISPERIDONE) [Concomitant]
  5. NALTREXONE (NALTREXONE) [Concomitant]
  6. LAMOTRIGINE (LAMOTRIGINE) [Concomitant]
  7. SINGULAIR [Concomitant]
  8. CLONAZEPAM (CLONAZEPAM) (CLONAZEPAM) [Concomitant]
  9. IBUPROFEN (IBUPROFEN) [Concomitant]

REACTIONS (11)
  - Fat necrosis [None]
  - Injection site necrosis [None]
  - Rash generalised [None]
  - Injection site reaction [None]
  - Injection site pain [None]
  - Injection site cellulitis [None]
  - Cellulitis [None]
  - Injection site abscess [None]
  - Injection site warmth [None]
  - Injection site erythema [None]
  - Injection site induration [None]
